FAERS Safety Report 8032810-6 (Version None)
Quarter: 2012Q1

REPORT INFORMATION
  Report Type: 
  Country: None (occurrence: None)
  Receive Date: 20120110
  Receipt Date: 20111229
  Transmission Date: 20120608
  Serious: Yes (Other)
  Sender: FDA-Public Use
  Company Number: US-ASTELLAS-2011US008669

PATIENT
  Sex: Female
  Weight: 93 kg

DRUGS (14)
  1. PROGRAF [Suspect]
     Dosage: 6 IN AM AND 5 IN PM
     Route: 065
     Dates: end: 20090216
  2. SODIUM BICARBONATE [Concomitant]
     Indication: PRODUCT USED FOR UNKNOWN INDICATION
     Dosage: 2 DF, TID
     Route: 065
  3. PROGRAF [Suspect]
     Dosage: 3 UNK, BID
     Route: 065
     Dates: start: 20090217
  4. MYCOPHENOLATE MOFETIL (CELLCEPT) [Concomitant]
     Indication: PRODUCT USED FOR UNKNOWN INDICATION
     Dosage: 2000 MG, BID
     Route: 065
  5. EXFORGE [Concomitant]
     Indication: PRODUCT USED FOR UNKNOWN INDICATION
     Dosage: 1 DF, UID/QD
     Route: 065
  6. PREDNISONE [Concomitant]
     Indication: PRODUCT USED FOR UNKNOWN INDICATION
     Dosage: 10 MG, UID/QD
     Route: 065
  7. MYCOPHENOLATE MOFETIL (CELLCEPT) [Concomitant]
     Dosage: 1 G, BID
     Route: 065
     Dates: end: 20090216
  8. CALCIUM W/VITAMIN D NOS [Concomitant]
     Indication: PRODUCT USED FOR UNKNOWN INDICATION
     Dosage: 500 MG, BID
     Route: 065
  9. LOPRESSOR [Concomitant]
     Indication: PRODUCT USED FOR UNKNOWN INDICATION
     Dosage: 50 MG, BID
     Route: 065
  10. PROGRAF [Suspect]
     Indication: RENAL TRANSPLANT
     Dosage: UNK
     Route: 048
  11. PROGRAF [Suspect]
     Dosage: 5 MG, BID
     Route: 065
  12. VALCYTE [Concomitant]
     Indication: PRODUCT USED FOR UNKNOWN INDICATION
     Dosage: UNK
     Route: 065
  13. MYCOPHENOLATE MOFETIL (CELLCEPT) [Concomitant]
     Dosage: 500 MG, BID
     Route: 065
     Dates: start: 20090217
  14. NORVASC [Concomitant]
     Indication: PRODUCT USED FOR UNKNOWN INDICATION
     Dosage: 2.5 MG, UID/QD
     Route: 065

REACTIONS (9)
  - TRANSPLANT FAILURE [None]
  - HYPERTENSION [None]
  - GLOMERULONEPHRITIS CHRONIC [None]
  - PROTEINURIA [None]
  - BLOOD CREATININE INCREASED [None]
  - RENAL TRANSPLANT [None]
  - KIDNEY TRANSPLANT REJECTION [None]
  - TREATMENT NONCOMPLIANCE [None]
  - ANAEMIA [None]
